FAERS Safety Report 12249502 (Version 1)
Quarter: 2016Q2

REPORT INFORMATION
  Report Type: Spontaneous
  Country: US (occurrence: US)
  Receive Date: 20160408
  Receipt Date: 20160408
  Transmission Date: 20160815
  Serious: Yes (Hospitalization)
  Sender: FDA-Public Use
  Company Number: US-JNJFOC-20160405045

PATIENT
  Age: 65 Year
  Sex: Female

DRUGS (17)
  1. FAMOTIDINE. [Concomitant]
     Active Substance: FAMOTIDINE
     Indication: GASTROINTESTINAL DISORDER
     Route: 065
  2. REMODULIN [Concomitant]
     Active Substance: TREPROSTINIL
     Indication: PULMONARY HYPERTENSION
     Dosage: 0.03 ML/HR CONTINUOUS
     Route: 058
  3. REMODULIN [Concomitant]
     Active Substance: TREPROSTINIL
     Indication: PULMONARY HYPERTENSION
     Dosage: 183 NG/KG/MIN, 23.75 MG
     Route: 042
  4. XARELTO [Suspect]
     Active Substance: RIVAROXABAN
     Indication: PRODUCT USED FOR UNKNOWN INDICATION
     Route: 048
  5. LORATADINE. [Concomitant]
     Active Substance: LORATADINE
     Indication: RESPIRATORY DISORDER
     Route: 048
  6. ADEMPAS [Suspect]
     Active Substance: RIOCIGUAT
     Indication: PULMONARY ARTERIAL HYPERTENSION
     Route: 048
     Dates: start: 20140612
  7. ADEMPAS [Suspect]
     Active Substance: RIOCIGUAT
     Indication: PULMONARY ARTERIAL HYPERTENSION
     Route: 048
     Dates: start: 20151208
  8. METOCLOPRAMIDE. [Concomitant]
     Active Substance: METOCLOPRAMIDE
     Indication: NERVOUS SYSTEM DISORDER
     Route: 030
  9. METOPROLOL TARTRATE. [Concomitant]
     Active Substance: METOPROLOL TARTRATE
     Indication: CARDIOVASCULAR DISORDER
     Route: 065
  10. PANTOPRAZOLE [Concomitant]
     Active Substance: PANTOPRAZOLE SODIUM
     Indication: GASTROINTESTINAL DISORDER
     Route: 048
  11. ESCITALOPRAM [Concomitant]
     Active Substance: ESCITALOPRAM OXALATE
     Route: 048
  12. OPSUMIT [Concomitant]
     Active Substance: MACITENTAN
     Route: 065
  13. CLOPIDOGREL [Concomitant]
     Active Substance: CLOPIDOGREL BISULFATE
     Indication: COAGULOPATHY
     Route: 048
  14. HEPARIN [Concomitant]
     Active Substance: HEPARIN SODIUM
     Indication: COAGULOPATHY
     Route: 065
  15. XARELTO [Suspect]
     Active Substance: RIVAROXABAN
     Indication: PRODUCT USED FOR UNKNOWN INDICATION
     Route: 048
  16. ADEMPAS [Suspect]
     Active Substance: RIOCIGUAT
     Indication: PULMONARY ARTERIAL HYPERTENSION
     Route: 048
  17. CALCIUM GLUCONATE. [Concomitant]
     Active Substance: CALCIUM GLUCONATE
     Route: 065

REACTIONS (15)
  - Tachycardia [Unknown]
  - Fluid overload [Unknown]
  - Oedema [Unknown]
  - Hypomagnesaemia [Unknown]
  - Presyncope [Unknown]
  - Hypokalaemia [Unknown]
  - Vaginal haemorrhage [Recovering/Resolving]
  - Nausea [Unknown]
  - Fluid retention [Unknown]
  - Intestinal obstruction [Unknown]
  - Coagulopathy [Unknown]
  - Urine output increased [Unknown]
  - Hypotension [Unknown]
  - Polydipsia [Unknown]
  - Dehydration [Unknown]

NARRATIVE: CASE EVENT DATE: 201512
